FAERS Safety Report 8405716-8 (Version None)
Quarter: 2012Q2

REPORT INFORMATION
  Report Type: 
  Country: None (occurrence: None)
  Receive Date: 20120604
  Receipt Date: 20120525
  Transmission Date: 20120825
  Serious: Yes (Hospitalization)
  Sender: FDA-Public Use
  Company Number: IN-ELI_LILLY_AND_COMPANY-IN201202006212

PATIENT
  Age: 64 Year
  Sex: Female

DRUGS (3)
  1. HUMALOG MIX 50/50 [Suspect]
     Dosage: 24 U, SINGLE
  2. HUMINSULIN-R [Concomitant]
     Dosage: UNK
     Dates: start: 20120217
  3. HUMALOG MIX 50/50 [Suspect]
     Indication: BLOOD GLUCOSE FLUCTUATION
     Dosage: 60 U, SINGLE

REACTIONS (3)
  - ASTHENIA [None]
  - EXPIRED DRUG ADMINISTERED [None]
  - BLOOD GLUCOSE INCREASED [None]
